FAERS Safety Report 10196774 (Version 3)
Quarter: 2014Q3

REPORT INFORMATION
  Report Type: Report from Study
  Country: SE (occurrence: SE)
  Receive Date: 20140527
  Receipt Date: 20140919
  Transmission Date: 20150326
  Serious: Yes (Hospitalization)
  Sender: FDA-Public Use
  Company Number: SE-BAYER-2013-019115

PATIENT
  Age: 81 Year
  Sex: Male
  Weight: 100 kg

DRUGS (7)
  1. DOLCONTIN [Concomitant]
     Active Substance: MORPHINE
     Indication: MUSCULOSKELETAL PAIN
     Dosage: 120 MG, DAILY
     Route: 048
     Dates: start: 20130115
  2. MORPHIN [Concomitant]
     Active Substance: MORPHINE
     Indication: MUSCULOSKELETAL PAIN
     Dosage: 10 MG, PRN
     Route: 048
     Dates: start: 20130115
  3. RADIUM-223 DICHLORIDE [Suspect]
     Active Substance: RADIUM RA-223 DICHLORIDE
     Indication: PROSTATE CANCER
     Dosage: 5000 KBQ, ONCE
     Route: 042
     Dates: start: 20130131, end: 20130131
  4. PREDNISOLON [Concomitant]
     Active Substance: PREDNISOLONE
     Indication: MUSCULOSKELETAL PAIN
     Dosage: 10 MG, DAILY
     Route: 048
     Dates: start: 20130115
  5. RADIUM-223 DICHLORIDE [Suspect]
     Active Substance: RADIUM RA-223 DICHLORIDE
     Indication: METASTASES TO BONE
  6. PANODIL [Concomitant]
     Active Substance: ACETAMINOPHEN
     Indication: MUSCULOSKELETAL PAIN
     Dosage: 4 G, DAILY
     Route: 048
     Dates: start: 20130115
  7. GABAPENTIN. [Concomitant]
     Active Substance: GABAPENTIN
     Indication: MUSCULOSKELETAL PAIN
     Dosage: 300 MG, DAILY
     Route: 048
     Dates: start: 20130115

REACTIONS (1)
  - Back pain [Recovering/Resolving]

NARRATIVE: CASE EVENT DATE: 20130211
